FAERS Safety Report 9124615 (Version 1)
Quarter: 2013Q1

REPORT INFORMATION
  Report Type: Report from Study
  Country: US (occurrence: US)
  Receive Date: 20130116
  Receipt Date: 20130116
  Transmission Date: 20140127
  Serious: Yes (Hospitalization)
  Sender: FDA-Public Use
  Company Number: US-BRISTOL-MYERS SQUIBB COMPANY-14303242

PATIENT
  Age: 71 Year
  Sex: Female

DRUGS (5)
  1. IPILIMUMAB [Suspect]
     Indication: MALIGNANT MELANOMA
     Dosage: LAST DOSE:23JUL08
     Route: 042
     Dates: start: 20080723
  2. LANTUS [Suspect]
     Indication: DIABETES MELLITUS
     Dates: start: 20080903, end: 20080903
  3. CELEBREX [Concomitant]
     Dates: start: 2006
  4. ADVIL [Concomitant]
     Dates: start: 2006
  5. CRESTOR [Concomitant]
     Dates: start: 2006

REACTIONS (5)
  - Hypokalaemia [Recovered/Resolved with Sequelae]
  - Diarrhoea [Recovered/Resolved with Sequelae]
  - Pyrexia [Recovered/Resolved]
  - Accidental overdose [Recovered/Resolved]
  - Colitis [Recovered/Resolved with Sequelae]
